FAERS Safety Report 9658500 (Version 2)
Quarter: 2013Q4

REPORT INFORMATION
  Report Type: Spontaneous
  Country: US (occurrence: US)
  Receive Date: 20131030
  Receipt Date: 20131030
  Transmission Date: 20140711
  Serious: No
  Sender: FDA-Public Use
  Company Number: US-PURDUE-USA-2010-0053399

PATIENT
  Sex: Female

DRUGS (2)
  1. OXYCONTIN (NDA 22-272) [Suspect]
     Indication: PAIN
     Dosage: 80 MG, TID
     Route: 048
     Dates: start: 201011
  2. OXYCONTIN (NDA 22-272) [Suspect]
     Dosage: 20 MG, TID
     Dates: start: 201011

REACTIONS (6)
  - Medication residue present [Unknown]
  - Drug effect decreased [Unknown]
  - Drug ineffective [Unknown]
  - Product size issue [Unknown]
  - Quality of life decreased [Unknown]
  - Product colour issue [Unknown]
